FAERS Safety Report 4621251-7 (Version None)
Quarter: 2005Q1

REPORT INFORMATION
  Report Type: 
  Country: None (occurrence: None)
  Receive Date: 20050322
  Receipt Date: 20050322
  Transmission Date: 20050727
  Serious: No
  Sender: FDA-Public Use
  Company Number: None

PATIENT
  Age: 79 Year
  Sex: Male
  Weight: 75 kg

DRUGS (9)
  1. WARFARIN SODIUM [Suspect]
     Indication: ATRIAL FIBRILLATION
     Dosage: 5 MG QD ORAL
     Route: 048
     Dates: start: 20040929
  2. DILTIAZEM [Concomitant]
  3. FINASTERIDE [Concomitant]
  4. FUROSEMIDE [Concomitant]
  5. GLYBURIDE [Concomitant]
  6. GUAIFENESIN [Concomitant]
  7. LORATADINE [Concomitant]
  8. MONTELUKAST [Concomitant]
  9. ??? [Concomitant]

REACTIONS (2)
  - INTERNATIONAL NORMALISED RATIO INCREASED [None]
  - POST PROCEDURAL HAEMORRHAGE [None]
